FAERS Safety Report 8557261-7 (Version None)
Quarter: 2012Q3

REPORT INFORMATION
  Report Type: 
  Country: None (occurrence: None)
  Receive Date: 20120801
  Receipt Date: 20120726
  Transmission Date: 20120928
  Serious: Yes (Other)
  Sender: FDA-Public Use
  Company Number: US-BAYER-2012-076170

PATIENT
  Sex: Male

DRUGS (6)
  1. MAGNEVIST [Suspect]
     Dosage: UNK
     Dates: start: 20041123
  2. MAGNEVIST [Suspect]
     Indication: IMAGING PROCEDURE
     Dosage: UNK
     Dates: start: 20030510
  3. OMNISCAN [Suspect]
     Indication: IMAGING PROCEDURE
     Dosage: UNK
     Dates: start: 20040625
  4. OMNISCAN [Suspect]
     Dosage: UNK
     Dates: start: 20041015
  5. OMNISCAN [Suspect]
     Dosage: UNK
     Dates: start: 20041004
  6. OMNISCAN [Suspect]
     Dosage: UNK
     Dates: start: 20050318

REACTIONS (11)
  - NEPHROGENIC SYSTEMIC FIBROSIS [None]
  - MOBILITY DECREASED [None]
  - EMOTIONAL DISTRESS [None]
  - GENERAL PHYSICAL HEALTH DETERIORATION [None]
  - SCAR [None]
  - DEFORMITY [None]
  - QUALITY OF LIFE DECREASED [None]
  - FIBROSIS [None]
  - INJURY [None]
  - ANXIETY [None]
  - PAIN [None]
